FAERS Safety Report 7788524-0 (Version None)
Quarter: 2011Q3

REPORT INFORMATION
  Report Type: 
  Country: None (occurrence: None)
  Receive Date: 20110930
  Receipt Date: 20110927
  Transmission Date: 20111222
  Serious: Yes (Death)
  Sender: FDA-Public Use
  Company Number: PHHY2011HU69848

PATIENT
  Sex: Female
  Weight: 65 kg

DRUGS (1)
  1. LETROZOLE [Suspect]
     Indication: BREAST CANCER
     Dosage: 2.5 MG, DAILY
     Dates: start: 20090914, end: 20100423

REACTIONS (2)
  - DEATH [None]
  - BLOOD PRESSURE DECREASED [None]
